FAERS Safety Report 17227087 (Version 4)
Quarter: 2020Q1

REPORT INFORMATION
  Report Type: Spontaneous
  Country: US (occurrence: US)
  Receive Date: 20200103
  Receipt Date: 20200203
  Transmission Date: 20200409
  Serious: Yes (Other)
  Sender: FDA-Public Use
  Company Number: US-AUROBINDO-AUR-APL-2019-108568

PATIENT
  Sex: Female

DRUGS (2)
  1. ECONTRA ONE-STEP [Suspect]
     Active Substance: LEVONORGESTREL
     Indication: POST COITAL CONTRACEPTION
     Dosage: 2 DOSAGE FORM TWICE IN A 2 WEEK PERIOD
     Route: 048
  2. ECONTRA ONE-STEP [Suspect]
     Active Substance: LEVONORGESTREL
     Dosage: UNK
     Route: 065
     Dates: start: 20191222

REACTIONS (4)
  - Drug ineffective [Unknown]
  - Metrorrhagia [Not Recovered/Not Resolved]
  - Nausea [Unknown]
  - Malaise [Unknown]

NARRATIVE: CASE EVENT DATE: 20191223
